FAERS Safety Report 21923429 (Version 1)
Quarter: 2023Q1

REPORT INFORMATION
  Report Type: Spontaneous
  Country: US (occurrence: US)
  Receive Date: 20230129
  Receipt Date: 20230129
  Transmission Date: 20230418
  Serious: No
  Sender: FDA-Public Use
  Company Number: US-CIPLA LTD.-2022US06388

PATIENT
  Sex: Female

DRUGS (4)
  1. ALBUTEROL [Suspect]
     Active Substance: ALBUTEROL
     Indication: Asthma
     Dosage: 0.18 MILLIGRAM, PRN (2 PUFFS, PRN, (EVERY 4-6 HOURS AS NEEDED)
     Dates: start: 20221018
  2. ALBUTEROL [Suspect]
     Active Substance: ALBUTEROL
     Dosage: 0.18 MILLIGRAM, PRN (2 PUFFS, PRN, (EVERY 4-6 HOURS AS NEEDED)
     Dates: start: 202210
  3. ALBUTEROL [Suspect]
     Active Substance: ALBUTEROL
     Dosage: 0.18 MILLIGRAM, PRN (2 PUFFS, PRN, (EVERY 4-6 HOURS AS NEEDED)
     Dates: start: 202210
  4. FLUTICASONE [Concomitant]
     Active Substance: FLUTICASONE
     Indication: Asthma
     Dosage: 2 PUFFS, BID

REACTIONS (6)
  - Cough [Recovered/Resolved]
  - Incorrect dose administered [Unknown]
  - Device delivery system issue [Unknown]
  - Product delivery mechanism issue [Unknown]
  - Product cleaning inadequate [Unknown]
  - Drug dose omission by device [Unknown]

NARRATIVE: CASE EVENT DATE: 20221001
